FAERS Safety Report 8814498 (Version 5)
Quarter: 2013Q2

REPORT INFORMATION
  Report Type: Report from Study
  Country: AU (occurrence: AU)
  Receive Date: 20120928
  Receipt Date: 20130409
  Transmission Date: 20140414
  Serious: Yes (Hospitalization, Other)
  Sender: FDA-Public Use
  Company Number: PHHY2012AU084268

PATIENT
  Age: 29 Year
  Sex: Male
  Weight: 77.5 kg

DRUGS (6)
  1. CLOZARIL [Suspect]
     Indication: SCHIZOPHRENIA, PARANOID TYPE
     Dosage: 425 MG, NOCTE
     Dates: start: 20091228
  2. ARIPIPRAZOLE [Concomitant]
     Indication: SCHIZOPHRENIA
     Dosage: 10 MG,
     Route: 048
  3. SULLIVAN [Concomitant]
     Dosage: UNK UKN, UNK
  4. AMISULPRIDE [Concomitant]
     Dosage: 400 MG, NOCTE
  5. TEMAZEPAM [Concomitant]
     Dosage: 20 MG (10- 20 MG), NOCTE PRN
  6. DIAZEPAM [Concomitant]
     Dosage: 10 MG (5- 10 MG), Q2H

REACTIONS (8)
  - Troponin increased [Recovered/Resolved]
  - Troponin T increased [Recovered/Resolved]
  - Tachycardia [Recovering/Resolving]
  - Blood creatine phosphokinase increased [Recovered/Resolved]
  - Mental impairment [Unknown]
  - Hallucination [Unknown]
  - Psychiatric symptom [Unknown]
  - Anxiety [Unknown]
